FAERS Safety Report 17501102 (Version 3)
Quarter: 2024Q3

REPORT INFORMATION
  Report Type: Spontaneous
  Country: US (occurrence: US)
  Receive Date: 20200305
  Receipt Date: 20240814
  Transmission Date: 20241017
  Serious: No
  Sender: GLAXOSMITHKLINE
  Company Number: US-GSKCCFUS-CASE-00607713_AE-35595

PATIENT
  Sex: Female

DRUGS (2)
  1. BREO ELLIPTA [Suspect]
     Active Substance: FLUTICASONE FUROATE\VILANTEROL TRIFENATATE
     Indication: Product used for unknown indication
     Dosage: UNK UNK, 1D
     Route: 055
     Dates: start: 201911
  2. ADVAIR DISKUS [Suspect]
     Active Substance: FLUTICASONE PROPIONATE\SALMETEROL XINAFOATE
     Indication: Product used for unknown indication
     Dosage: UNK

REACTIONS (6)
  - Dyspnoea [Unknown]
  - Gingival discomfort [Unknown]
  - Eye pain [Unknown]
  - Seborrhoea [Unknown]
  - Eyelid ptosis [Unknown]
  - Wrong technique in device usage process [Unknown]
